FAERS Safety Report 13610371 (Version 1)
Quarter: 2017Q2

REPORT INFORMATION
  Report Type: Spontaneous
  Country: US (occurrence: US)
  Receive Date: 20170602
  Receipt Date: 20170602
  Transmission Date: 20170830
  Serious: Yes (Hospitalization)
  Sender: FDA-Public Use
  Company Number: None

PATIENT
  Age: 46 Year
  Sex: Male
  Weight: 103.5 kg

DRUGS (10)
  1. BIO-D MULSION FORTE [Concomitant]
  2. OXYCODONE [Concomitant]
     Active Substance: OXYCODONE
  3. CIPROFLOXACIN. [Suspect]
     Active Substance: CIPROFLOXACIN
     Indication: INFECTION
     Dosage: ?          QUANTITY:20 TABLET(S);?
     Route: 048
     Dates: start: 20140627, end: 20140629
  4. VITAMIN C [Concomitant]
     Active Substance: ASCORBIC ACID
  5. BIO-E BG [Concomitant]
  6. POTASSIUM CHLORIDE. [Concomitant]
     Active Substance: POTASSIUM CHLORIDE
  7. MG-ZYME [Concomitant]
  8. TESTOSTERONE INJECTIONS [Concomitant]
     Active Substance: TESTOSTERONE
  9. BIO-E MULSION FORTE [Concomitant]
  10. BIOMEGA 3 [Concomitant]

REACTIONS (13)
  - Skin disorder [None]
  - Disturbance in attention [None]
  - Fatigue [None]
  - Anger [None]
  - Hypoaesthesia [None]
  - Toothache [None]
  - Palpitations [None]
  - Suicidal ideation [None]
  - Pain [None]
  - Night sweats [None]
  - Insomnia [None]
  - Feeling abnormal [None]
  - Muscular weakness [None]

NARRATIVE: CASE EVENT DATE: 20140629
